FAERS Safety Report 5774650-4 (Version None)
Quarter: 2008Q2

REPORT INFORMATION
  Report Type: 
  Country: None (occurrence: None)
  Receive Date: 20080616
  Receipt Date: 20080602
  Transmission Date: 20081010
  Serious: Yes (Other)
  Sender: FDA-Public Use
  Company Number: IL-GENENTECH-262410

PATIENT

DRUGS (5)
  1. AVASTIN [Suspect]
     Indication: GLIOMA
     Dosage: 5 MG/KG, Q2W
     Route: 042
  2. IRINOTECAN HCL [Suspect]
     Indication: GLIOMA
     Dosage: 125 MG/M2, Q2W
     Route: 042
  3. CORTICOSTEROID (UNK INGREDIENTS) [Concomitant]
     Indication: DRUG USE FOR UNKNOWN INDICATION
  4. DEXAMETHASONE TAB [Concomitant]
     Indication: DRUG USE FOR UNKNOWN INDICATION
     Dosage: 20 MG, UNK
  5. ANTIEMETIC [Concomitant]
     Indication: DRUG USE FOR UNKNOWN INDICATION

REACTIONS (1)
  - PSYCHOTIC DISORDER [None]
